FAERS Safety Report 23165595 (Version 1)
Quarter: 2023Q4

REPORT INFORMATION
  Report Type: Spontaneous
  Country: US (occurrence: US)
  Receive Date: 20231109
  Receipt Date: 20231109
  Transmission Date: 20240109
  Serious: No
  Sender: FDA-Public Use
  Company Number: US-ANIPHARMA-2023-US-032364

PATIENT
  Age: 59 Year
  Sex: Male

DRUGS (1)
  1. CORTICOTROPIN [Suspect]
     Active Substance: CORTICOTROPIN
     Indication: Rheumatoid arthritis
     Dosage: 1ML INJECTED TWICE A WEEK, TUES AND FRI, SUBCUTANEOUSLY
     Route: 058
     Dates: start: 20230922

REACTIONS (3)
  - Asthenia [Recovered/Resolved]
  - Back pain [Recovered/Resolved]
  - Taste disorder [Recovered/Resolved]

NARRATIVE: CASE EVENT DATE: 20230922
